FAERS Safety Report 6678792-0 (Version None)
Quarter: 2010Q2

REPORT INFORMATION
  Report Type: 
  Country: None (occurrence: None)
  Receive Date: 20100412
  Receipt Date: 20100412
  Transmission Date: 20101027
  Serious: Yes (Hospitalization)
  Sender: FDA-Public Use
  Company Number: None

PATIENT
  Sex: Female
  Weight: 123.5 kg

DRUGS (1)
  1. MEMANTINE HCL [Suspect]
     Dosage: 1100 MG

REACTIONS (7)
  - CHEST PAIN [None]
  - DECREASED APPETITE [None]
  - DEEP VEIN THROMBOSIS [None]
  - DYSPNOEA [None]
  - PULMONARY EMBOLISM [None]
  - RESTLESSNESS [None]
  - VOMITING [None]
